FAERS Safety Report 18298252 (Version 2)
Quarter: 2020Q3

REPORT INFORMATION
  Report Type: Spontaneous
  Country: US (occurrence: US)
  Receive Date: 20200922
  Receipt Date: 20200923
  Transmission Date: 20201103
  Serious: Yes (Other)
  Sender: FDA-Public Use
  Company Number: US-PFIZER INC-2020360336

PATIENT
  Age: 34 Year
  Sex: Female
  Weight: 126 kg

DRUGS (7)
  1. LEUCOVORINA [Concomitant]
     Active Substance: LEUCOVORIN CALCIUM
     Indication: COLORECTAL CANCER
     Dosage: 350 MG, OVER 90 MINUTES EVERY 2 WEEKS
     Route: 042
     Dates: start: 20200915
  2. ATROPINE. [Concomitant]
     Active Substance: ATROPINE
     Indication: ANTICHOLINERGIC SYNDROME
     Dosage: 0.4 MG, ONCE EVERY 2 WEEKS
     Route: 058
     Dates: start: 20200915
  3. APREPITANT. [Concomitant]
     Active Substance: APREPITANT
     Indication: ANTIEMETIC SUPPORTIVE CARE
     Dosage: 130 MG, INFUSED EVERY 2 WEEKS
     Dates: start: 20200915
  4. CAMPTOSAR [Suspect]
     Active Substance: IRINOTECAN HYDROCHLORIDE
     Dosage: 180 MG/MM2 VIA INFUSION EVERY 2 WEEKS
     Dates: start: 20200706
  5. PALONOSETRON. [Concomitant]
     Active Substance: PALONOSETRON HYDROCHLORIDE
     Indication: ANTIEMETIC SUPPORTIVE CARE
     Dosage: 0.25 MG, PUSH EVERY TWO WEEKS
     Route: 042
     Dates: start: 20200915
  6. 5 FU [Concomitant]
     Active Substance: FLUOROURACIL
     Indication: COLORECTAL CANCER
     Dosage: 2400 MG/MM2 INFUSED OVER 46 HOURS EVERY 2 WEEKS
     Dates: start: 20200915
  7. DECADRON [Concomitant]
     Active Substance: DEXAMETHASONE
     Indication: ANTIEMETIC SUPPORTIVE CARE
     Dosage: 10 MG, INFUSED EVERY TWO WEEKS
     Dates: start: 20200915

REACTIONS (4)
  - Dysphagia [Unknown]
  - Muscle twitching [Unknown]
  - Muscular weakness [Unknown]
  - Asthenia [Recovering/Resolving]

NARRATIVE: CASE EVENT DATE: 20200915
